FAERS Safety Report 9153856 (Version 1)
Quarter: 2013Q1

REPORT INFORMATION
  Report Type: Spontaneous
  Country: US (occurrence: None)
  Receive Date: 20130306
  Receipt Date: 20130306
  Transmission Date: 20140127
  Serious: Yes (Hospitalization)
  Sender: FDA-Public Use
  Company Number: None

PATIENT
  Sex: Male
  Weight: 81.5 kg

DRUGS (7)
  1. RAPAMYCIN [Suspect]
  2. BUSULFAN [Suspect]
  3. FLUDARABINE PHOSPHATE [Suspect]
  4. METHOTREXATE [Concomitant]
  5. RITUXIMAB (MOAB C2B8 ANTI CD20, CHIMERIC) [Suspect]
  6. MAGNESIUM AMINO ACID CHELATE [Concomitant]
  7. OXANDROLONE (OXANDRIN) [Concomitant]

REACTIONS (14)
  - Pyrexia [None]
  - Loss of consciousness [None]
  - Unresponsive to stimuli [None]
  - Mydriasis [None]
  - Posturing [None]
  - Cerebral haemorrhage [None]
  - Brain oedema [None]
  - Coma [None]
  - Thrombocytopenia [None]
  - Contusion [None]
  - Hypertension [None]
  - Anaemia [None]
  - Leukopenia [None]
  - Hypotension [None]
